FAERS Safety Report 11810143 (Version 1)
Quarter: 2015Q4

REPORT INFORMATION
  Report Type: Spontaneous
  Country: US (occurrence: None)
  Receive Date: 20151207
  Receipt Date: 20151207
  Transmission Date: 20160305
  Serious: Yes (Hospitalization)
  Sender: FDA-Public Use
  Company Number: None

PATIENT
  Age: 83 Year
  Sex: Male

DRUGS (17)
  1. SIMVASTATIN. [Concomitant]
     Active Substance: SIMVASTATIN
  2. OXYBUTYNIN [Concomitant]
     Active Substance: OXYBUTYNIN
  3. GLIMEPRIDE [Concomitant]
     Active Substance: GLIMEPIRIDE
  4. GLYBURIDE. [Concomitant]
     Active Substance: GLYBURIDE
  5. ENALAPRIL [Concomitant]
     Active Substance: ENALAPRIL
  6. LEXAPRO [Concomitant]
     Active Substance: ESCITALOPRAM OXALATE
  7. DILTIAZEM [Concomitant]
     Active Substance: DILTIAZEM
  8. TRAZODONE [Concomitant]
     Active Substance: TRAZODONE HYDROCHLORIDE
  9. XARELTO [Concomitant]
     Active Substance: RIVAROXABAN
  10. ESCITALOPRAM 20 MG [Suspect]
     Active Substance: ESCITALOPRAM OXALATE
     Indication: DEPRESSION
     Route: 048
     Dates: start: 20151001
  11. DOXEPIN [Concomitant]
     Active Substance: DOXEPIN
  12. METFORMIN [Concomitant]
     Active Substance: METFORMIN HYDROCHLORIDE
  13. JANUVIA [Concomitant]
     Active Substance: SITAGLIPTIN PHOSPHATE
  14. TAMSULOSIN [Concomitant]
     Active Substance: TAMSULOSIN
  15. IRBESARTAN. [Concomitant]
     Active Substance: IRBESARTAN
  16. METOPROLOL TARTRATE. [Concomitant]
     Active Substance: METOPROLOL TARTRATE
  17. TEMAZEPAM. [Concomitant]
     Active Substance: TEMAZEPAM

REACTIONS (5)
  - Mania [None]
  - Suicidal ideation [None]
  - Bipolar disorder [None]
  - Dementia [None]
  - Atrial fibrillation [None]

NARRATIVE: CASE EVENT DATE: 20151101
